FAERS Safety Report 13057268 (Version 1)
Quarter: 2016Q4

REPORT INFORMATION
  Report Type: Spontaneous
  Country: US (occurrence: US)
  Receive Date: 20161222
  Receipt Date: 20161222
  Transmission Date: 20170207
  Serious: Yes (Hospitalization)
  Sender: FDA-Public Use
  Company Number: None

PATIENT
  Age: 38 Year
  Sex: Male
  Weight: 58.6 kg

DRUGS (8)
  1. CETUXIMAB [Suspect]
     Active Substance: CETUXIMAB
     Indication: SQUAMOUS CELL CARCINOMA OF HEAD AND NECK
     Dosage: DOSE - 250 MG/M2?
     Route: 042
     Dates: start: 20160922, end: 20161219
  2. TYLENOL [Concomitant]
     Active Substance: ACETAMINOPHEN
  3. ONDANSETRON [Concomitant]
     Active Substance: ONDANSETRON
  4. PAZOPANIB [Suspect]
     Active Substance: PAZOPANIB
     Indication: SQUAMOUS CELL CARCINOMA OF HEAD AND NECK
     Dosage: ROUTE - PO/ G-TUBE
     Route: 048
     Dates: start: 20160922, end: 20161222
  5. FENTANYL. [Concomitant]
     Active Substance: FENTANYL
  6. OXYCODONE [Concomitant]
     Active Substance: OXYCODONE
  7. PROCHLORPERAZINE. [Concomitant]
     Active Substance: PROCHLORPERAZINE
  8. SENNA [Concomitant]
     Active Substance: SENNA LEAF\SENNOSIDES\SENNOSIDES A AND B

REACTIONS (2)
  - Ureterolithiasis [None]
  - Hydronephrosis [None]

NARRATIVE: CASE EVENT DATE: 20161221
